FAERS Safety Report 11998837 (Version 1)
Quarter: 2016Q1

REPORT INFORMATION
  Report Type: Report from Study
  Country: US (occurrence: US)
  Receive Date: 20160203
  Receipt Date: 20160203
  Transmission Date: 20160526
  Serious: No
  Sender: FDA-Public Use
  Company Number: US-ABBVIE-15K-163-1418512-00

PATIENT
  Age: 54 Year
  Sex: Male

DRUGS (4)
  1. HUMIRA [Suspect]
     Active Substance: ADALIMUMAB
     Indication: PSORIASIS
     Dosage: INITIAL LOADING DOSE
     Route: 065
     Dates: start: 20150508, end: 20150508
  2. HUMIRA [Suspect]
     Active Substance: ADALIMUMAB
     Indication: PSORIATIC ARTHROPATHY
     Route: 065
     Dates: end: 20151218
  3. METHOTREXATE [Concomitant]
     Active Substance: METHOTREXATE
     Indication: PRODUCT USED FOR UNKNOWN INDICATION
  4. METHOTREXATE [Concomitant]
     Active Substance: METHOTREXATE
     Dosage: 6 TABS PER WEEK
     Route: 048
     Dates: start: 20150618

REACTIONS (7)
  - Injection site pain [Not Recovered/Not Resolved]
  - Drug ineffective [Unknown]
  - Dermatitis acneiform [Unknown]
  - Arthralgia [Not Recovered/Not Resolved]
  - Skin fissures [Unknown]
  - Skin haemorrhage [Unknown]
  - Psoriasis [Unknown]

NARRATIVE: CASE EVENT DATE: 2015
